FAERS Safety Report 23264192 (Version 2)
Quarter: 2023Q4

REPORT INFORMATION
  Report Type: Spontaneous
  Country: US (occurrence: US)
  Receive Date: 20231205
  Receipt Date: 20231218
  Transmission Date: 20240110
  Serious: Yes (Other)
  Sender: FDA-Public Use
  Company Number: US-GILEAD-2023-0653438

PATIENT
  Age: 62 Year
  Sex: Male

DRUGS (1)
  1. TECARTUS [Suspect]
     Active Substance: BREXUCABTAGENE AUTOLEUCEL
     Indication: Mantle cell lymphoma
     Dosage: UNK
     Route: 065
     Dates: start: 20231101

REACTIONS (4)
  - Endotracheal intubation [Not Recovered/Not Resolved]
  - Tremor [Unknown]
  - Swelling [Unknown]
  - White blood cell count decreased [Unknown]
